FAERS Safety Report 22344056 (Version 4)
Quarter: 2023Q2

REPORT INFORMATION
  Report Type: Report from Study
  Country: PH (occurrence: PH)
  Receive Date: 20230519
  Receipt Date: 20230626
  Transmission Date: 20230721
  Serious: Yes (Death, Hospitalization)
  Sender: FDA-Public Use
  Company Number: PH-OTSUKA-2023_012894

PATIENT
  Age: 39 Year
  Sex: Male

DRUGS (1)
  1. TOLVAPTAN [Suspect]
     Active Substance: TOLVAPTAN
     Indication: Product used for unknown indication
     Dosage: 15 MG TABLET ? TABLET EVERY OTHER DAY
     Route: 048
     Dates: start: 20200101

REACTIONS (8)
  - Death [Fatal]
  - Cardiac disorder [Unknown]
  - Abdominal discomfort [Recovered/Resolved]
  - Insomnia [Unknown]
  - Wrong technique in product usage process [Unknown]
  - Incorrect product administration duration [Unknown]
  - Underdose [Unknown]
  - Inappropriate schedule of product administration [Unknown]

NARRATIVE: CASE EVENT DATE: 20200101
